FAERS Safety Report 7618578-3 (Version None)
Quarter: 2011Q3

REPORT INFORMATION
  Report Type: 
  Country: None (occurrence: None)
  Receive Date: 20110718
  Receipt Date: 20110712
  Transmission Date: 20111222
  Serious: Yes (Life-Threatening)
  Sender: FDA-Public Use
  Company Number: FR-PFIZER INC-2011156589

PATIENT
  Age: 52 Year
  Sex: Male

DRUGS (8)
  1. ROCURONIUM BROMIDE [Suspect]
     Indication: INDUCTION OF ANAESTHESIA
     Dosage: UNK
     Route: 042
     Dates: start: 20110621, end: 20110621
  2. ULTIVA [Suspect]
     Indication: INDUCTION OF ANAESTHESIA
     Dosage: UNK
     Route: 042
     Dates: start: 20110621, end: 20110621
  3. LYRICA [Suspect]
     Dosage: 50 MG
     Route: 048
     Dates: start: 20110620, end: 20110620
  4. PROPOFOL [Suspect]
     Indication: INDUCTION OF ANAESTHESIA
     Dosage: UNK
     Route: 042
     Dates: start: 20110621, end: 20110621
  5. LYRICA [Suspect]
     Dosage: 75 MG
     Route: 048
     Dates: start: 20110621, end: 20110621
  6. KETAMINE HCL [Suspect]
     Indication: INDUCTION OF ANAESTHESIA
     Dosage: UNK
     Route: 042
     Dates: start: 20110621, end: 20110621
  7. AMLODIPINE/VALSARTAN [Concomitant]
  8. MODURETIC 5-50 [Concomitant]

REACTIONS (3)
  - CIRCULATORY COLLAPSE [None]
  - GENERALISED ERYTHEMA [None]
  - ANAPHYLACTIC SHOCK [None]
